FAERS Safety Report 10420058 (Version 3)
Quarter: 2014Q4

REPORT INFORMATION
  Report Type: Spontaneous
  Country: CA (occurrence: None)
  Receive Date: 20140828
  Receipt Date: 20141030
  Transmission Date: 20150528
  Serious: Yes (Hospitalization)
  Sender: FDA-Public Use
  Company Number: CA-016816

PATIENT
  Age: 75 Year
  Sex: Male

DRUGS (8)
  1. APO-ENALAPRIL [Concomitant]
     Active Substance: ENALAPRIL
  2. KIVEXA [Concomitant]
     Active Substance: ABACAVIR SULFATE\LAMIVUDINE
  3. PANTOPRAZOLE [Concomitant]
     Active Substance: PANTOPRAZOLE SODIUM
  4. FIRMAGON [Suspect]
     Active Substance: DEGARELIX ACETATE
     Indication: PROSTATE CANCER
     Dosage: 80 MG 1X/MONTH SUBCUTANEOUS
     Route: 058
     Dates: start: 20140321
  5. ASAPHEN [Concomitant]
     Active Substance: ASPIRIN
  6. FELODIPINE. [Concomitant]
     Active Substance: FELODIPINE
  7. BETAMETHASONE VALERATE. [Concomitant]
     Active Substance: BETAMETHASONE VALERATE
  8. BISOPROLOL [Concomitant]
     Active Substance: BISOPROLOL

REACTIONS (5)
  - Hypomagnesaemia [None]
  - Hypokalaemia [None]
  - Bradycardia [None]
  - Electrolyte imbalance [None]
  - Anaemia [None]

NARRATIVE: CASE EVENT DATE: 20140819
